FAERS Safety Report 16749592 (Version 1)
Quarter: 2020Q3

REPORT INFORMATION
  Report Type: Spontaneous
  Country: RO (occurrence: RO)
  Receive Date: 20190828
  Receipt Date: 20190828
  Transmission Date: 20201104
  Serious: Yes (Death, Hospitalization, Other)
  Sender: FDA-Public Use
  Company Number: RO-ACCORD-152985

PATIENT
  Age: 56 Year
  Sex: Female

DRUGS (6)
  1. CAPECITABINE. [Suspect]
     Active Substance: CAPECITABINE
     Indication: BREAST CANCER METASTATIC
     Route: 065
     Dates: start: 201901, end: 201903
  2. KADCYLA [Suspect]
     Active Substance: ADO-TRASTUZUMAB EMTANSINE
     Indication: BREAST CANCER METASTATIC
     Dosage: NO
     Route: 042
     Dates: start: 201801, end: 201812
  3. IBANDRONIC ACID. [Suspect]
     Active Substance: IBANDRONIC ACID
     Indication: BREAST CANCER METASTATIC
     Dosage: ONGOING: NO
     Route: 042
     Dates: start: 20161003
  4. HERCEPTIN [Suspect]
     Active Substance: TRASTUZUMAB
     Indication: BREAST CANCER METASTATIC
     Dosage: NO
     Route: 058
     Dates: start: 20161003
  5. LAPATINIB/LAPATINIB DITOSYLATE [Concomitant]
     Indication: BREAST CANCER METASTATIC
     Dosage: NO
     Route: 065
     Dates: start: 201901, end: 201903
  6. PACLITAXEL. [Concomitant]
     Active Substance: PACLITAXEL
     Indication: BREAST CANCER METASTATIC
     Dosage: NO
     Route: 065
     Dates: start: 20161003, end: 201712

REACTIONS (5)
  - Haematotoxicity [Unknown]
  - Coma [Fatal]
  - Gastrointestinal toxicity [Unknown]
  - Transaminases increased [Unknown]
  - Neuromuscular toxicity [Unknown]

NARRATIVE: CASE EVENT DATE: 2017
